FAERS Safety Report 7900245-X (Version None)
Quarter: 2011Q4

REPORT INFORMATION
  Report Type: 
  Country: None (occurrence: None)
  Receive Date: 20111108
  Receipt Date: 20111028
  Transmission Date: 20120403
  Serious: Yes (Other)
  Sender: FDA-Public Use
  Company Number: US-CELGENEUS-163-21880-11110218

PATIENT
  Age: 65 Year
  Sex: Male
  Weight: 88.4 kg

DRUGS (5)
  1. DEXAMETHASONE [Suspect]
     Dosage: 40 MILLIGRAM
     Route: 048
     Dates: start: 20110726
  2. DEXAMETHASONE [Suspect]
     Dosage: 40 MILLIGRAM
     Route: 048
     Dates: start: 20111018, end: 20111018
  3. REVLIMID [Suspect]
     Dosage: 25 MILLIGRAM
     Route: 048
     Dates: start: 20110726
  4. REVLIMID [Suspect]
     Dosage: 25 MILLIGRAM
     Route: 048
     Dates: start: 20111018, end: 20111023
  5. ASPIRIN [Concomitant]
     Dosage: 325 MILLIGRAM
     Route: 048

REACTIONS (3)
  - LEFT VENTRICULAR DYSFUNCTION [None]
  - CARDIAC FAILURE [None]
  - MITRAL VALVE DISEASE [None]
